FAERS Safety Report 16812541 (Version 1)
Quarter: 2019Q3

REPORT INFORMATION
  Report Type: Report from Study
  Country: EG (occurrence: EG)
  Receive Date: 20190916
  Receipt Date: 20190916
  Transmission Date: 20191005
  Serious: Yes (Hospitalization)
  Sender: FDA-Public Use
  Company Number: EG-ELI_LILLY_AND_COMPANY-EG201909006221

PATIENT
  Sex: Female

DRUGS (5)
  1. TAREG [Concomitant]
     Active Substance: VALSARTAN
     Indication: HYPERTENSION
     Dosage: UNK
  2. TERIPARATIDE [Suspect]
     Active Substance: TERIPARATIDE
     Indication: OSTEOPOROSIS
     Dosage: 20 UG, DAILY
     Route: 058
     Dates: start: 20190705
  3. ATOR [Concomitant]
     Active Substance: ATORVASTATIN CALCIUM
     Indication: BLOOD CHOLESTEROL INCREASED
     Dosage: UNK
  4. DIAMICRON [Concomitant]
     Active Substance: GLICLAZIDE
     Indication: DIABETES MELLITUS
     Dosage: UNK
  5. THIOTEX [Concomitant]
     Indication: PERIPHERAL VASCULAR DISORDER
     Dosage: UNK

REACTIONS (3)
  - Haemoglobin decreased [Unknown]
  - Labyrinthitis [Recovered/Resolved]
  - Hypersomnia [Recovered/Resolved]

NARRATIVE: CASE EVENT DATE: 201907
